FAERS Safety Report 6562168-0 (Version None)
Quarter: 2010Q1

REPORT INFORMATION
  Report Type: 
  Country: None (occurrence: None)
  Receive Date: 20100130
  Receipt Date: 20091105
  Transmission Date: 20100710
  Serious: No
  Sender: FDA-Public Use
  Company Number: US-ABBOTT-09P-163-0607143-00

PATIENT
  Sex: Male
  Weight: 53.572 kg

DRUGS (1)
  1. HUMIRA [Suspect]
     Indication: CROHN'S DISEASE
     Dosage: DAY 1
     Dates: start: 20091030

REACTIONS (3)
  - DIZZINESS [None]
  - FEELING ABNORMAL [None]
  - PYREXIA [None]
